FAERS Safety Report 21129710 (Version 3)
Quarter: 2022Q3

REPORT INFORMATION
  Report Type: Spontaneous
  Country: US (occurrence: US)
  Receive Date: 20220726
  Receipt Date: 20220825
  Transmission Date: 20221026
  Serious: No
  Sender: FDA-Public Use
  Company Number: US-GSKCCFUS-Case-01442607_AE-82782

PATIENT
  Sex: Female
  Weight: 88.45 kg

DRUGS (2)
  1. NUCALA [Suspect]
     Active Substance: MEPOLIZUMAB
     Indication: Asthma
     Dosage: 100 MG, Z EVERY 4 WEEKS
     Route: 030
     Dates: start: 2021
  2. NUCALA [Suspect]
     Active Substance: MEPOLIZUMAB
     Indication: Nasal polyps

REACTIONS (6)
  - Exposure via skin contact [Unknown]
  - Injection site pain [Unknown]
  - Contusion [Unknown]
  - Underdose [Unknown]
  - Accidental exposure to product [Unknown]
  - Product complaint [Unknown]
